FAERS Safety Report 9154303 (Version 1)
Quarter: 2013Q1

REPORT INFORMATION
  Report Type: Spontaneous
  Country: IT (occurrence: IT)
  Receive Date: 20130311
  Receipt Date: 20130311
  Transmission Date: 20140127
  Serious: Yes (Other)
  Sender: FDA-Public Use
  Company Number: IT-MYLANLABS-2013S1004545

PATIENT
  Age: 65 Year
  Sex: Female

DRUGS (6)
  1. CLOPIDOGREL [Suspect]
     Indication: PROPHYLAXIS
     Route: 048
     Dates: start: 20120618, end: 20130212
  2. CARDIOASPIRIN [Suspect]
     Indication: PROPHYLAXIS
     Route: 048
     Dates: start: 20120618, end: 20130212
  3. CONGESCOR [Concomitant]
     Indication: PRODUCT USED FOR UNKNOWN INDICATION
  4. TAREG [Concomitant]
     Indication: PRODUCT USED FOR UNKNOWN INDICATION
  5. EUTIROX [Concomitant]
     Indication: PRODUCT USED FOR UNKNOWN INDICATION
  6. EZETIMIBE [Concomitant]
     Indication: PRODUCT USED FOR UNKNOWN INDICATION

REACTIONS (3)
  - Haematuria [Not Recovered/Not Resolved]
  - Colitis ulcerative [Not Recovered/Not Resolved]
  - Dysuria [Not Recovered/Not Resolved]
